FAERS Safety Report 9261727 (Version 1)
Quarter: 2013Q2

REPORT INFORMATION
  Report Type: Spontaneous
  Country: US (occurrence: US)
  Receive Date: 20130429
  Receipt Date: 20130429
  Transmission Date: 20140414
  Serious: Yes (Death)
  Sender: FDA-Public Use
  Company Number: US-TEVA-400675USA

PATIENT
  Age: 56 Year
  Sex: Male
  Weight: 61.74 kg

DRUGS (2)
  1. TREANDA [Suspect]
     Indication: CHRONIC LYMPHOCYTIC LEUKAEMIA
     Route: 042
     Dates: start: 20121017, end: 20121017
  2. RITUXIMAB [Concomitant]
     Indication: CHRONIC LYMPHOCYTIC LEUKAEMIA
     Route: 042
     Dates: start: 20121016, end: 20121016

REACTIONS (1)
  - Chronic lymphocytic leukaemia [Fatal]
